FAERS Safety Report 4891243-1 (Version None)
Quarter: 2006Q1

REPORT INFORMATION
  Report Type: 
  Country: None (occurrence: None)
  Receive Date: 20060123
  Receipt Date: 20060119
  Transmission Date: 20060701
  Serious: Yes (Hospitalization, Other)
  Sender: FDA-Public Use
  Company Number: HQWYE284910JAN06

PATIENT
  Age: 17 Month
  Sex: Female

DRUGS (1)
  1. CHILDREN'S ADVIL [Suspect]
     Indication: VULVAL DISORDER
     Dosage: 300 MG DAILY ORAL
     Route: 048
     Dates: start: 20051208, end: 20051212

REACTIONS (5)
  - CELLULITIS GANGRENOUS [None]
  - SOMNOLENCE [None]
  - TACHYCARDIA [None]
  - VULVAL ABSCESS [None]
  - VULVITIS [None]
